FAERS Safety Report 6596814-2 (Version None)
Quarter: 2010Q1

REPORT INFORMATION
  Report Type: 
  Country: None (occurrence: None)
  Receive Date: 20100223
  Receipt Date: 20100212
  Transmission Date: 20100710
  Serious: Yes (Other)
  Sender: FDA-Public Use
  Company Number: SE-PFIZER INC-2010018850

PATIENT
  Age: 70 Year
  Sex: Male

DRUGS (6)
  1. LYRICA [Suspect]
     Indication: NEURALGIA
     Dosage: 25 MG, 2X/DAY
     Route: 048
     Dates: start: 20080702
  2. LYRICA [Suspect]
     Dosage: 175 MG, 1X/DAY
  3. PERSANTINE [Concomitant]
     Dosage: UNK
  4. TROMBYL [Concomitant]
     Dosage: UNK
  5. BUPROPION [Concomitant]
     Dosage: UNK
  6. NOZINAN [Concomitant]
     Dosage: 5 MG, 1X/DAY

REACTIONS (13)
  - APHASIA [None]
  - BALANCE DISORDER [None]
  - COORDINATION ABNORMAL [None]
  - DECREASED APPETITE [None]
  - DEPRESSION [None]
  - DYSARTHRIA [None]
  - ERECTILE DYSFUNCTION [None]
  - FEELING COLD [None]
  - GRIP STRENGTH DECREASED [None]
  - INCONTINENCE [None]
  - MEMORY IMPAIRMENT [None]
  - MUSCULAR WEAKNESS [None]
  - WHEEZING [None]
